FAERS Safety Report 6247992-6 (Version None)
Quarter: 2009Q2

REPORT INFORMATION
  Report Type: 
  Country: None (occurrence: None)
  Receive Date: 20090626
  Receipt Date: 20090617
  Transmission Date: 20091009
  Serious: Yes (Death)
  Sender: FDA-Public Use
  Company Number: US-AMGEN-US352285

PATIENT
  Sex: Male

DRUGS (4)
  1. NPLATE [Suspect]
     Indication: IDIOPATHIC THROMBOCYTOPENIC PURPURA
     Dates: start: 20081112, end: 20081112
  2. CORTICOSTEROID NOS [Concomitant]
     Dates: start: 20060325
  3. IMMUNOGLOBULINS [Concomitant]
     Dates: start: 20060325, end: 20070421
  4. RITUXIMAB [Concomitant]

REACTIONS (1)
  - CHRONIC LYMPHOCYTIC LEUKAEMIA [None]
